FAERS Safety Report 12416671 (Version 2)
Quarter: 2016Q2

REPORT INFORMATION
  Report Type: Spontaneous
  Country: ES (occurrence: ES)
  Receive Date: 20160530
  Receipt Date: 20160616
  Transmission Date: 20160815
  Serious: Yes (Other)
  Sender: FDA-Public Use
  Company Number: ES-JNJFOC-20100605914

PATIENT

DRUGS (1)
  1. RISPERIDONE. [Suspect]
     Active Substance: RISPERIDONE
     Indication: SCHIZOPHRENIA
     Dosage: DOSE: 75-200 MG
     Route: 065

REACTIONS (11)
  - Anticholinergic syndrome [Unknown]
  - Hepatic function abnormal [Unknown]
  - Blood test abnormal [Unknown]
  - Sedation [Unknown]
  - Metabolic syndrome [Unknown]
  - Drug ineffective [Unknown]
  - Hyperprolactinaemia [Unknown]
  - Blood thyroid stimulating hormone [Unknown]
  - Parkinsonism [Unknown]
  - Hypotension [Unknown]
  - Weight increased [Unknown]
